FAERS Safety Report 13076745 (Version 1)
Quarter: 2016Q4

REPORT INFORMATION
  Report Type: Spontaneous
  Country: US (occurrence: US)
  Receive Date: 20161230
  Receipt Date: 20161230
  Transmission Date: 20170207
  Serious: No
  Sender: FDA-Public Use
  Company Number: None

PATIENT
  Age: 8 Year
  Sex: Male
  Weight: 31.5 kg

DRUGS (1)
  1. TAMIFLU [Suspect]
     Active Substance: OSELTAMIVIR PHOSPHATE
     Indication: INFLUENZA
     Dosage: ?          QUANTITY:2 TEASPOON(S);?
     Route: 048
     Dates: start: 20161220, end: 20161223

REACTIONS (3)
  - Vomiting [None]
  - Dysphonia [None]
  - Hallucination, auditory [None]

NARRATIVE: CASE EVENT DATE: 20161228
